FAERS Safety Report 6857679-4 (Version None)
Quarter: 2010Q3

REPORT INFORMATION
  Report Type: 
  Country: None (occurrence: None)
  Receive Date: 20100719
  Receipt Date: 20100709
  Transmission Date: 20110219
  Serious: Yes (Hospitalization)
  Sender: FDA-Public Use
  Company Number: US-WATSON-2010-09249

PATIENT
  Age: 53 Year
  Sex: Male

DRUGS (6)
  1. FENTANYL CITRATE [Suspect]
     Indication: ANAESTHESIA
     Dosage: 325 MICROGRAM
     Route: 042
  2. VERSED [Suspect]
     Indication: ANAESTHESIA
     Dosage: 1 MG
     Route: 042
  3. DIPRIVAN [Suspect]
     Indication: ANAESTHESIA
     Dosage: 100 MG
     Route: 042
  4. ULTANE [Suspect]
     Indication: ANAESTHESIA
     Dosage: 1.85 MIN. ALVEOLAR CONCENTRATION
  5. ROBINUL [Suspect]
     Indication: ANAESTHESIA
     Dosage: 0.2 MG
     Route: 042
  6. NORMODYNE [Suspect]
     Indication: HYPERTENSION
     Dosage: UNK
     Route: 042

REACTIONS (1)
  - COMPARTMENT SYNDROME [None]
